FAERS Safety Report 8670431 (Version 3)
Quarter: 2015Q1

REPORT INFORMATION
  Report Type: Report from Study
  Country: US (occurrence: US)
  Receive Date: 20120718
  Receipt Date: 20150204
  Transmission Date: 20150721
  Serious: Yes (Death, Other)
  Sender: FDA-Public Use
  Company Number: US-ROCHE-1087511

PATIENT
  Age: 47 Year
  Sex: Female

DRUGS (10)
  1. VIGAMOX [Concomitant]
     Active Substance: MOXIFLOXACIN HYDROCHLORIDE
  2. GENTAMICIN. [Concomitant]
     Active Substance: GENTAMICIN
     Route: 061
  3. LUCENTIS [Suspect]
     Active Substance: RANIBIZUMAB
     Indication: DIABETIC RETINOPATHY
  4. LUCENTIS [Suspect]
     Active Substance: RANIBIZUMAB
     Indication: MACULAR DEGENERATION
     Route: 050
     Dates: start: 20090630, end: 20090731
  5. TETRACAINE [Concomitant]
     Active Substance: TETRACAINE\TETRACAINE HYDROCHLORIDE
     Route: 061
  6. BETADINE [Concomitant]
     Active Substance: POVIDONE-IODINE
  7. TOBRAMYCIN. [Concomitant]
     Active Substance: TOBRAMYCIN
     Route: 061
  8. DEXAMETHASONE. [Concomitant]
     Active Substance: DEXAMETHASONE
     Route: 061
  9. BACITRACIN. [Concomitant]
     Active Substance: BACITRACIN
  10. LIDOCAINE. [Concomitant]
     Active Substance: LIDOCAINE
     Route: 065

REACTIONS (6)
  - Diabetes mellitus [Unknown]
  - Neuropathy peripheral [Unknown]
  - Off label use [Unknown]
  - Nephropathy [Unknown]
  - Death [Fatal]
  - Renal failure [Unknown]

NARRATIVE: CASE EVENT DATE: 20090809
